FAERS Safety Report 5820064-8 (Version None)
Quarter: 2008Q3

REPORT INFORMATION
  Report Type: 
  Country: None (occurrence: None)
  Receive Date: 20080724
  Receipt Date: 20080714
  Transmission Date: 20090109
  Serious: Yes (Other)
  Sender: FDA-Public Use
  Company Number: US-JNJFOC-20080703508

PATIENT
  Sex: Male
  Weight: 99.79 kg

DRUGS (6)
  1. REMICADE [Suspect]
     Route: 042
  2. REMICADE [Suspect]
     Indication: POLYMYOSITIS
     Route: 042
  3. METHOTREXATE [Concomitant]
  4. LEVACOR [Concomitant]
  5. WELCHOL [Concomitant]
  6. ZETIA [Concomitant]

REACTIONS (2)
  - ASTHENIA [None]
  - BLOOD CREATINE PHOSPHOKINASE INCREASED [None]
